FAERS Safety Report 8197626-9 (Version None)
Quarter: 2012Q1

REPORT INFORMATION
  Report Type: 
  Country: None (occurrence: None)
  Receive Date: 20120309
  Receipt Date: 20120302
  Transmission Date: 20120608
  Serious: Yes (Hospitalization)
  Sender: FDA-Public Use
  Company Number: FR-NAPPMUNDI-GBR-2012-0009872

PATIENT
  Sex: Female

DRUGS (10)
  1. MIDAZOLAM HCL [Suspect]
     Indication: SEDATION
     Dosage: UNK
     Route: 042
     Dates: start: 20111229
  2. ACETAMINOPHEN [Suspect]
     Indication: PAIN
     Dosage: 1 G, BID
     Route: 048
     Dates: start: 20111229, end: 20111229
  3. FIVASA                             /00747601/ [Concomitant]
     Indication: CROHN'S DISEASE
  4. ACUPAN [Concomitant]
     Dosage: 20 MG, UNK
  5. RABEPRAZOLE SODIUM [Concomitant]
     Dosage: 20 MG, UNK
  6. KETOPROFEN [Suspect]
     Dosage: 100 MG, BID
     Route: 042
     Dates: start: 20111229, end: 20111229
  7. RINGER LACTATE                     /01126301/ [Suspect]
     Dosage: UNK
     Route: 042
     Dates: start: 20111229
  8. MORPHINE SULFATE [Suspect]
     Indication: PAIN
     Dosage: 10 MG, BID
     Route: 048
     Dates: start: 20111228, end: 20111230
  9. TRAMADOL HCL [Suspect]
     Indication: PAIN
     Dosage: 100 MG, UNK
     Route: 065
     Dates: start: 20111228
  10. POLARAMINE [Concomitant]
     Dosage: 6 MG, UNK

REACTIONS (4)
  - ANAPHYLACTIC SHOCK [None]
  - URTICARIA [None]
  - RASH ERYTHEMATOUS [None]
  - HYPOTENSION [None]
